FAERS Safety Report 6023195-5 (Version None)
Quarter: 2008Q4

REPORT INFORMATION
  Report Type: 
  Country: None (occurrence: None)
  Receive Date: 20081224
  Receipt Date: 20081224
  Transmission Date: 20090506
  Serious: Yes (Hospitalization)
  Sender: FDA-Public Use
  Company Number: None

PATIENT
  Sex: Female
  Weight: 140.2 kg

DRUGS (21)
  1. THERMODOX [Suspect]
     Indication: INFLAMMATORY CARCINOMA OF BREAST STAGE IV
     Dosage: 40 MG/M2 EVERY 21 DAYS  IV
     Route: 042
     Dates: start: 20081111, end: 20081201
  2. LORTAB [Concomitant]
  3. PRILOSEC [Concomitant]
  4. ZOLOFT [Concomitant]
  5. AMBIEN [Concomitant]
  6. FOSAMAX PLUS D [Concomitant]
  7. FLEXERIL [Concomitant]
  8. DIAZIDE [Concomitant]
  9. POTASSIUM CHLORIDE [Concomitant]
  10. ZOCOR [Concomitant]
  11. SINGULAIR [Concomitant]
  12. ADVAIR DISKUS 250/50 [Concomitant]
  13. COMBIVENT [Concomitant]
  14. ZOPENEX [Concomitant]
  15. ASCORBIC ACID [Concomitant]
  16. VITAMIN D [Concomitant]
  17. MULTI-VITAMIN [Concomitant]
  18. CALCIUM [Concomitant]
  19. RESTASIS [Concomitant]
  20. DEXAMETHASONE TAB [Concomitant]
  21. OXYCODONE [Concomitant]

REACTIONS (2)
  - BREAST CELLULITIS [None]
  - DISEASE PROGRESSION [None]
